FAERS Safety Report 14440021 (Version 2)
Quarter: 2018Q1

REPORT INFORMATION
  Report Type: Spontaneous
  Country: US (occurrence: US)
  Receive Date: 20180125
  Receipt Date: 20180219
  Transmission Date: 20180509
  Serious: Yes (Death, Hospitalization)
  Sender: FDA-Public Use
  Company Number: US-NOVOPROD-582165

PATIENT
  Age: 70 Year
  Sex: Female

DRUGS (2)
  1. NOVOLOG [Suspect]
     Active Substance: INSULIN ASPART
     Indication: DIABETES MELLITUS
     Dosage: AFTER EACH MEAL- SLIDING SCALE
     Route: 058
     Dates: start: 2003
  2. LEVEMIR [Suspect]
     Active Substance: INSULIN DETEMIR
     Indication: DIABETES MELLITUS
     Dosage: 10 U, BID
     Route: 058
     Dates: start: 2003

REACTIONS (5)
  - Colitis [Fatal]
  - Malnutrition [Fatal]
  - Gastritis [Fatal]
  - Decreased appetite [Fatal]
  - Blood glucose decreased [Recovered/Resolved]

NARRATIVE: CASE EVENT DATE: 2017
